FAERS Safety Report 13648735 (Version 1)
Quarter: 2017Q2

REPORT INFORMATION
  Report Type: Spontaneous
  Country: CN (occurrence: CN)
  Receive Date: 20170613
  Receipt Date: 20170613
  Transmission Date: 20170830
  Serious: Yes (Other)
  Sender: FDA-Public Use
  Company Number: CN-009507513-1706CHN005022

PATIENT
  Sex: Female

DRUGS (1)
  1. MARVELON [Suspect]
     Active Substance: DESOGESTREL\ETHINYL ESTRADIOL
     Route: 048

REACTIONS (3)
  - Brain hypoxia [Recovering/Resolving]
  - Head discomfort [Recovering/Resolving]
  - Dizziness [Unknown]
